FAERS Safety Report 19086066 (Version 1)
Quarter: 2021Q2

REPORT INFORMATION
  Report Type: Spontaneous
  Country: KR (occurrence: KR)
  Receive Date: 20210402
  Receipt Date: 20210402
  Transmission Date: 20210717
  Serious: Yes (Hospitalization, Other)
  Sender: FDA-Public Use
  Company Number: KR-LUPIN PHARMACEUTICALS INC.-2021-04029

PATIENT
  Age: 55 Year
  Sex: Male

DRUGS (7)
  1. CEFTRIAXONE. [Suspect]
     Active Substance: CEFTRIAXONE
     Indication: ANTIBIOTIC PROPHYLAXIS
     Dosage: 2 GRAM, QD
     Route: 065
  2. CYANOACRYLATE [Suspect]
     Active Substance: OCRYLATE
     Indication: GASTRIC VARICES HAEMORRHAGE
     Dosage: UNK (THREE INJECTIONS OF 1ML, 1ML AND 0.5ML EACH (TOTAL 2.5 ML) WITH MIXTURE OF ETHIODIZED OIL)
     Route: 065
  3. LIPIODOL [Suspect]
     Active Substance: ETHIODIZED OIL
     Dosage: UNK (TWO INJECTIONS (1 ML AND 0.5 ML) WITH MIXTURE OF CYANOACRYLATE)
     Route: 065
  4. PIPERACILLIN/TAZOBACTAM [Suspect]
     Active Substance: PIPERACILLIN SODIUM\TAZOBACTAM SODIUM
     Indication: ANTIBIOTIC PROPHYLAXIS
     Dosage: UNK
     Route: 065
  5. TERLIPRESSIN [Concomitant]
     Active Substance: TERLIPRESSIN
     Indication: GASTRIC VARICES HAEMORRHAGE
     Dosage: UNK
     Route: 042
  6. CYANOACRYLATE [Suspect]
     Active Substance: OCRYLATE
     Dosage: UNK (TWO INJECTIONS (1 ML AND 0.5 ML) WITH MIXTURE OF ETHIODIZED OIL)
     Route: 065
  7. LIPIODOL [Suspect]
     Active Substance: ETHIODIZED OIL
     Indication: GASTRIC VARICES HAEMORRHAGE
     Dosage: UNK (THREE INJECTION OF 1ML, 1ML AND 0.5ML EACH (TOTAL 2.5 ML) MIXTURE OF CYANOACRYLATE)
     Route: 065

REACTIONS (2)
  - Candida infection [Recovered/Resolved]
  - Fungaemia [Recovered/Resolved]
